FAERS Safety Report 23433997 (Version 3)
Quarter: 2024Q1

REPORT INFORMATION
  Report Type: Report from Study
  Country: MX (occurrence: MX)
  Receive Date: 20240123
  Receipt Date: 20240314
  Transmission Date: 20240409
  Serious: Yes (Hospitalization, Other)
  Sender: FDA-Public Use
  Company Number: MX-Merck Healthcare KGaA-2023461192

PATIENT
  Age: 52 Year
  Sex: Female

DRUGS (6)
  1. CETUXIMAB [Suspect]
     Active Substance: CETUXIMAB
     Indication: Colorectal cancer metastatic
     Dosage: 650 MG, 2/M, ONCE IN FIFTEEN DAYS
     Route: 042
     Dates: start: 20220829, end: 20230630
  2. CAPECITABINE [Concomitant]
     Active Substance: CAPECITABINE
     Indication: Colorectal cancer
     Dosage: 500 MG, OTHER, 2 TABLETS DURING MORNING, AFTERNOON AND NIGHT FOR 14 DAYS WITH 7 DAYS OF REST
     Route: 048
     Dates: start: 20221226
  3. TRAMADOL [Concomitant]
     Active Substance: TRAMADOL\TRAMADOL HYDROCHLORIDE
     Indication: Product used for unknown indication
     Dosage: 36.5 MG, DAILY, START DATE JUN TO NOV-2023
     Route: 048
     Dates: start: 2023
  4. TRAMADOL [Concomitant]
     Active Substance: TRAMADOL\TRAMADOL HYDROCHLORIDE
     Dosage: 1 DOSAGE FORM, EACH EVENING
     Route: 048
  5. ENALAPRIL [Concomitant]
     Active Substance: ENALAPRIL
     Indication: Product used for unknown indication
     Dosage: 10 MG, EACH EVENING, DOSE 1 TABLET DAILY AT NIGHT THERAPY STARTED 10 YEARS AGO
     Route: 048
     Dates: start: 2014
  6. ACETAMINOPHEN [Concomitant]
     Active Substance: ACETAMINOPHEN
     Indication: Pain
     Dosage: 1 DOSAGE FORM, OTHER,325 (UNSPECIFIED UNIT) EVERY 24 HOURS
     Route: 065

REACTIONS (6)
  - Proctectomy [Recovered/Resolved]
  - Hepatectomy [Unknown]
  - Hepatic pain [Unknown]
  - Decreased appetite [Recovered/Resolved]
  - Weight decreased [Recovered/Resolved]
  - Off label use [Unknown]

NARRATIVE: CASE EVENT DATE: 20230712
